FAERS Safety Report 6907324-4 (Version None)
Quarter: 2010Q3

REPORT INFORMATION
  Report Type: 
  Country: None (occurrence: None)
  Receive Date: 20100730
  Receipt Date: 20100719
  Transmission Date: 20110219
  Serious: Yes (Other)
  Sender: FDA-Public Use
  Company Number: WAES1004USA00474

PATIENT
  Age: 21 Year
  Sex: Female

DRUGS (5)
  1. ISENTRESS [Suspect]
     Indication: HIV INFECTION
     Dosage: 800 MG/DAILY/PO
     Route: 048
  2. NORVIR [Suspect]
     Dosage: 100 MG/DAILY/PO
     Route: 048
  3. PREZISTA [Suspect]
     Dosage: 800 MG/DAILY/PO
     Route: 048
  4. TRUVADA [Suspect]
     Dosage: 500 MG/1X/PO
     Route: 048
  5. ZIDOVUDINE [Suspect]
     Dosage: /IV
     Route: 042

REACTIONS (5)
  - DRUG EXPOSURE DURING PREGNANCY [None]
  - HAEMOLYSIS [None]
  - PRE-ECLAMPSIA [None]
  - PREGNANCY [None]
  - PREMATURE LABOUR [None]
